FAERS Safety Report 4556729-8 (Version None)
Quarter: 2005Q1

REPORT INFORMATION
  Report Type: 
  Country: None (occurrence: None)
  Receive Date: 20050114
  Receipt Date: 20041229
  Transmission Date: 20050727
  Serious: Yes (Life-Threatening, Hospitalization, Disabling, Other)
  Sender: FDA-Public Use
  Company Number: 2004-0007818

PATIENT
  Age: 42 Year
  Sex: Male
  Weight: 64.5 kg

DRUGS (24)
  1. VIREAD [Suspect]
     Indication: HIV INFECTION
     Dosage: 300 MG, 1 IN 1 D, ORAL
     Route: 048
     Dates: start: 20030613, end: 20041108
  2. VALCYTE [Suspect]
  3. VIDEX [Concomitant]
  4. RITONAVIR [Concomitant]
  5. ATAZANAVIR (ATAZANAVIR) [Concomitant]
  6. ESCITALOPRAM (ESCITALOPRAM) [Concomitant]
  7. TRAZODONE (TRAZODONE) [Concomitant]
  8. AZITHROMYCIN [Concomitant]
  9. ITRACONAZOLE [Concomitant]
  10. BENADRYL [Concomitant]
  11. BACTRIM DS [Concomitant]
  12. DRONABINOL (DRONABINOL) [Concomitant]
  13. MEGACE [Concomitant]
  14. OXANDRIN [Concomitant]
  15. FEXOFENADINE HCL [Concomitant]
  16. TESTOSTERONE [Concomitant]
  17. RISPERDAL [Concomitant]
  18. CLONAZEPAM [Concomitant]
  19. ZOLOFT [Concomitant]
  20. METOPROLOL TARTRATE [Concomitant]
  21. ETHAMBUTOL (ETHAMBUTOL) [Concomitant]
  22. DAPSONE [Concomitant]
  23. CLOTRIMAZOLE (CLOTRIMAZOLE) [Concomitant]
  24. WELLBUTRIN [Concomitant]

REACTIONS (35)
  - ACTIVITIES OF DAILY LIVING IMPAIRED [None]
  - AMNESIA [None]
  - ANAEMIA [None]
  - ASTHENIA [None]
  - BACTERIA URINE [None]
  - BLOOD AMYLASE INCREASED [None]
  - BLOOD CULTURE POSITIVE [None]
  - BLOOD URINE [None]
  - CANDIDIASIS [None]
  - CEREBRAL INFARCTION [None]
  - COGNITIVE DISORDER [None]
  - FATIGUE [None]
  - FEBRILE NEUTROPENIA [None]
  - GAIT DISTURBANCE [None]
  - GLOMERULONEPHRITIS FOCAL [None]
  - GLUCOSE URINE PRESENT [None]
  - HYPERSOMNIA [None]
  - HYPOACUSIS [None]
  - LEUKOPENIA [None]
  - LIPASE INCREASED [None]
  - LUNG INFILTRATION [None]
  - MENTAL STATUS CHANGES [None]
  - NAUSEA [None]
  - NEPHROSCLEROSIS [None]
  - NIGHT SWEATS [None]
  - PNEUMONIA [None]
  - PRODUCTIVE COUGH [None]
  - PSEUDOMONAS INFECTION [None]
  - RENAL FAILURE ACUTE [None]
  - RENAL TUBULAR NECROSIS [None]
  - SPUTUM DISCOLOURED [None]
  - STREPTOCOCCAL INFECTION [None]
  - VASCULAR DEMENTIA [None]
  - VOMITING [None]
  - WEIGHT DECREASED [None]
